FAERS Safety Report 8517153-6 (Version None)
Quarter: 2012Q3

REPORT INFORMATION
  Report Type: 
  Country: None (occurrence: None)
  Receive Date: 20120718
  Receipt Date: 20120711
  Transmission Date: 20120928
  Serious: Yes (Other)
  Sender: FDA-Public Use
  Company Number: JP-B.I. PHARMACEUTICALS,INC./RIDGEFIELD-2012-EU-03531BY

PATIENT
  Age: 82 Year
  Sex: Female

DRUGS (5)
  1. NORVASC [Concomitant]
  2. TELMISARTAN [Suspect]
     Indication: HYPERTENSION
     Dosage: 40 MG
  3. XYLOCAINE [Concomitant]
  4. MOXIFLOXACIN [Concomitant]
  5. BETAMETHASONE [Concomitant]

REACTIONS (1)
  - CHOROIDAL DETACHMENT [None]
